FAERS Safety Report 6794662-1 (Version None)
Quarter: 2010Q2

REPORT INFORMATION
  Report Type: 
  Country: None (occurrence: None)
  Receive Date: 20100624
  Receipt Date: 20100624
  Transmission Date: 20101027
  Serious: Yes (Other)
  Sender: FDA-Public Use
  Company Number: None

PATIENT
  Sex: Male
  Weight: 94.3482 kg

DRUGS (4)
  1. CHANTIX [Suspect]
     Indication: TOBACCO ABUSE
     Dosage: 1MG PO BID
     Route: 048
  2. SIMVASTATIN [Concomitant]
  3. NIACIN [Concomitant]
  4. ATENOLOL [Concomitant]

REACTIONS (1)
  - VASCULITIC RASH [None]
